FAERS Safety Report 20624840 (Version 2)
Quarter: 2022Q2

REPORT INFORMATION
  Report Type: Spontaneous
  Country: SE (occurrence: SE)
  Receive Date: 20220323
  Receipt Date: 20220425
  Transmission Date: 20220721
  Serious: Yes (Hospitalization)
  Sender: FDA-Public Use
  Company Number: SE-NOVOPROD-900877

PATIENT
  Age: 61 Year
  Sex: Female
  Weight: 120 kg

DRUGS (6)
  1. NOVORAPID [Suspect]
     Active Substance: INSULIN ASPART
     Indication: Type 1 diabetes mellitus
     Dosage: 80 IU, QD(BASAL DOSE: 40 UNITS, BOLUS DOSE: 20 TO 40 UNITS)
     Route: 058
     Dates: start: 1993
  2. SERTRALINE [Concomitant]
     Active Substance: SERTRALINE HYDROCHLORIDE
     Indication: Depression
     Dosage: 200 MG, QD
     Route: 048
     Dates: start: 2004
  3. IOPIDINE [Concomitant]
     Active Substance: APRACLONIDINE HYDROCHLORIDE
     Indication: Intraocular pressure increased
     Dosage: 10 MG/ML, QD
     Dates: start: 2022
  4. LASIX [Concomitant]
     Active Substance: FUROSEMIDE
     Dosage: 30 MG, QD
     Route: 048
     Dates: start: 2022
  5. SPIRONOLACTONE [Concomitant]
     Active Substance: SPIRONOLACTONE
     Dosage: 25 MG, QD
     Route: 048
     Dates: start: 2022
  6. OMEPRAZOLE [Concomitant]
     Active Substance: OMEPRAZOLE
     Dosage: 20 MG, QD
     Route: 048
     Dates: start: 2022

REACTIONS (3)
  - COVID-19 [Not Recovered/Not Resolved]
  - Atrial fibrillation [Not Recovered/Not Resolved]
  - Diabetic ketoacidosis [Recovering/Resolving]

NARRATIVE: CASE EVENT DATE: 20220224
